FAERS Safety Report 13981043 (Version 2)
Quarter: 2017Q4

REPORT INFORMATION
  Report Type: Report from Study
  Country: AE (occurrence: AE)
  Receive Date: 20170918
  Receipt Date: 20171110
  Transmission Date: 20180321
  Serious: Yes (Hospitalization, Other)
  Sender: FDA-Public Use
  Company Number: AE-AMGEN-ARESL2017138901

PATIENT
  Age: 25 Year
  Sex: Female

DRUGS (3)
  1. NEUPOGEN [Suspect]
     Active Substance: FILGRASTIM
     Indication: NEUTROPENIA
     Dosage: 300 MUG, QD FOR 5 DAYS
     Route: 058
     Dates: start: 20170828, end: 20170901
  2. NEUPOGEN [Suspect]
     Active Substance: FILGRASTIM
     Dosage: 300 MUG, QD FOR 6 DAYS
     Route: 058
     Dates: start: 20170911, end: 20170916
  3. NEUPOGEN [Suspect]
     Active Substance: FILGRASTIM
     Dosage: 300 MUG, QD
     Route: 058
     Dates: start: 201709, end: 201709

REACTIONS (1)
  - Febrile neutropenia [Recovered/Resolved]

NARRATIVE: CASE EVENT DATE: 20170902
